FAERS Safety Report 10309371 (Version 3)
Quarter: 2014Q3

REPORT INFORMATION
  Report Type: Spontaneous
  Country: US (occurrence: US)
  Receive Date: 20140716
  Receipt Date: 20140812
  Transmission Date: 20150326
  Serious: Yes (Hospitalization, Other)
  Sender: FDA-Public Use
  Company Number: US-GILEAD-2014-0108748

PATIENT
  Age: 69 Year
  Sex: Female

DRUGS (1)
  1. LETAIRIS [Suspect]
     Active Substance: AMBRISENTAN
     Indication: PRODUCT USED FOR UNKNOWN INDICATION
     Dosage: 5 MG, QD
     Route: 065
     Dates: start: 20080910

REACTIONS (10)
  - Palpitations [Unknown]
  - Malaise [Unknown]
  - Oedema [Unknown]
  - Pneumonia [Unknown]
  - Cough [Unknown]
  - Fatigue [Unknown]
  - Scleroderma [Unknown]
  - Chest discomfort [Unknown]
  - Staphylococcal infection [Unknown]
  - Dyspnoea [Unknown]
